FAERS Safety Report 9225394 (Version 2)
Quarter: 2013Q2

REPORT INFORMATION
  Report Type: Spontaneous
  Country: US (occurrence: US)
  Receive Date: 20130411
  Receipt Date: 20130521
  Transmission Date: 20140414
  Serious: Yes (Other)
  Sender: FDA-Public Use
  Company Number: US-ROCHE-1209685

PATIENT
  Age: 24 Year
  Sex: Female

DRUGS (3)
  1. ACTILYSE [Suspect]
     Indication: CEREBRAL VENOUS THROMBOSIS
     Dosage: DRIP FOR 24 HOURS
     Route: 041
  2. HEPARIN [Suspect]
     Indication: CEREBRAL VENOUS THROMBOSIS
     Route: 058
  3. TIROFIBAN [Suspect]
     Indication: CEREBRAL VENOUS THROMBOSIS
     Dosage: DRIP OF 0.5 MCG/KG/H
     Route: 042

REACTIONS (3)
  - Subdural haematoma [Unknown]
  - Haematocrit decreased [Unknown]
  - Perirenal haematoma [Unknown]
